FAERS Safety Report 13447135 (Version 5)
Quarter: 2017Q3

REPORT INFORMATION
  Report Type: Report from Study
  Country: CA (occurrence: CA)
  Receive Date: 20170417
  Receipt Date: 20170807
  Transmission Date: 20171127
  Serious: Yes (Hospitalization, Other)
  Sender: FDA-Public Use
  Company Number: PHHY2015CA036136

PATIENT
  Age: 85 Year
  Sex: Male

DRUGS (6)
  1. BISOPROLOL [Concomitant]
     Active Substance: BISOPROLOL
     Indication: PRODUCT USED FOR UNKNOWN INDICATION
     Dosage: 5 MG, QD
     Route: 048
  2. SANDOSTATIN LAR DEPOT [Suspect]
     Active Substance: OCTREOTIDE ACETATE
     Indication: ANGIODYSPLASIA
  3. COUMADIN [Concomitant]
     Active Substance: WARFARIN SODIUM
     Indication: PRODUCT USED FOR UNKNOWN INDICATION
     Route: 065
  4. SANDOSTATIN LAR DEPOT [Suspect]
     Active Substance: OCTREOTIDE ACETATE
     Indication: ANAEMIA
     Dosage: 20 MG, QMO (ONCE A MONTH)
     Route: 030
     Dates: start: 20150206
  5. SANDOSTATIN [Suspect]
     Active Substance: OCTREOTIDE ACETATE
     Indication: ANAEMIA
     Dosage: 50 UG, BID
     Route: 058
     Dates: start: 20150115, end: 201501
  6. SANDOSTATIN [Suspect]
     Active Substance: OCTREOTIDE ACETATE
     Indication: ANGIODYSPLASIA

REACTIONS (18)
  - Pulmonary embolism [Unknown]
  - Pain in extremity [Unknown]
  - Heart rate decreased [Unknown]
  - Product use in unapproved indication [Unknown]
  - Gout [Unknown]
  - International normalised ratio abnormal [Unknown]
  - Joint injury [Unknown]
  - Respiratory disorder [Unknown]
  - Fall [Unknown]
  - Contusion [Unknown]
  - Blood urine present [Unknown]
  - Renal failure [Unknown]
  - Phlebitis [Unknown]
  - Cardiac arrest [Unknown]
  - Nasal injury [Unknown]
  - Clostridium difficile infection [Unknown]
  - Gait disturbance [Unknown]
  - Weight decreased [Unknown]

NARRATIVE: CASE EVENT DATE: 2015
